FAERS Safety Report 15737559 (Version 1)
Quarter: 2018Q4

REPORT INFORMATION
  Report Type: Spontaneous
  Country: JP (occurrence: JP)
  Receive Date: 20181219
  Receipt Date: 20181219
  Transmission Date: 20190205
  Serious: Yes (Other)
  Sender: FDA-Public Use
  Company Number: JP-ACCORD-096323

PATIENT
  Age: 24 Year
  Sex: Male
  Weight: 60 kg

DRUGS (2)
  1. FLUOROURACIL. [Suspect]
     Active Substance: FLUOROURACIL
     Indication: OESOPHAGEAL SQUAMOUS CELL CARCINOMA STAGE II
     Dosage: ADMINISTERED ON DAY 1
  2. CISPLATIN. [Suspect]
     Active Substance: CISPLATIN
     Indication: OESOPHAGEAL SQUAMOUS CELL CARCINOMA STAGE II
     Dosage: ADMINISTERED ON DAY 1

REACTIONS (2)
  - Oesophagitis [Unknown]
  - Hepatobiliary disease [Unknown]
